FAERS Safety Report 21967439 (Version 2)
Quarter: 2023Q2

REPORT INFORMATION
  Report Type: Spontaneous
  Country: BR (occurrence: BR)
  Receive Date: 20230208
  Receipt Date: 20230404
  Transmission Date: 20230721
  Serious: Yes (Other)
  Sender: FDA-Public Use
  Company Number: BR-PFIZER INC-PV202300022608

PATIENT
  Sex: Female

DRUGS (1)
  1. BESPONSA [Suspect]
     Active Substance: INOTUZUMAB OZOGAMICIN
     Indication: Acute lymphocytic leukaemia
     Dosage: UNK, CYCLIC

REACTIONS (2)
  - Hallucination, visual [Unknown]
  - Guillain-Barre syndrome [Not Recovered/Not Resolved]
